FAERS Safety Report 4407739-2 (Version None)
Quarter: 2004Q3

REPORT INFORMATION
  Report Type: 
  Country: None (occurrence: None)
  Receive Date: 20040721
  Receipt Date: 20040706
  Transmission Date: 20050211
  Serious: Yes (Life-Threatening, Other)
  Sender: FDA-Public Use
  Company Number: USA040566732

PATIENT
  Age: 26 Year
  Sex: Male

DRUGS (3)
  1. HUMATROPE [Suspect]
     Indication: GROWTH HORMONE DEFICIENCY
  2. THYROID HORMONE [Concomitant]
  3. TESTOSTERONE [Concomitant]

REACTIONS (3)
  - CHEST PAIN [None]
  - INFECTION [None]
  - WEGENER'S GRANULOMATOSIS [None]
